FAERS Safety Report 4377769-8 (Version None)
Quarter: 2004Q2

REPORT INFORMATION
  Report Type: 
  Country: None (occurrence: None)
  Receive Date: 20040615
  Receipt Date: 20040615
  Transmission Date: 20050107
  Serious: Yes (Other)
  Sender: FDA-Public Use
  Company Number: None

PATIENT
  Age: 77 Year
  Sex: Female

DRUGS (4)
  1. IBUPROFEN [Suspect]
     Indication: INFLAMMATION
     Dosage: ONE PO TID
     Route: 048
  2. IBUPROFEN [Suspect]
     Indication: PAIN
     Dosage: ONE PO TID
     Route: 048
  3. FLUCINOONE OINT [Concomitant]
  4. MEBENDAZOLE [Concomitant]

REACTIONS (2)
  - DIZZINESS [None]
  - PHARMACEUTICAL PRODUCT COMPLAINT [None]
